FAERS Safety Report 20098244 (Version 1)
Quarter: 2021Q4

REPORT INFORMATION
  Report Type: Spontaneous
  Country: US (occurrence: US)
  Receive Date: 20211122
  Receipt Date: 20211122
  Transmission Date: 20220304
  Serious: Yes (Hospitalization)
  Sender: FDA-Public Use
  Company Number: US-PFIZER INC-202101544047

PATIENT
  Age: 45 Year
  Sex: Female

DRUGS (5)
  1. THYMOCYTE IMMUNE GLOBULIN NOS [Suspect]
     Active Substance: THYMOCYTE IMMUNE GLOBULIN NOS
     Dosage: UNK (TOTAL 5.25 MG/KG)
  2. TACROLIMUS [Concomitant]
     Active Substance: TACROLIMUS
     Indication: Hypoperfusion
     Dosage: UNK
  3. TACROLIMUS [Concomitant]
     Active Substance: TACROLIMUS
     Dosage: UNK (LOW DOSE)
  4. AMLODIPINE [Concomitant]
     Active Substance: AMLODIPINE BESYLATE
     Indication: Angiopathy
     Dosage: UNK
  5. SILDENAFIL [Concomitant]
     Active Substance: SILDENAFIL
     Indication: Angiopathy
     Dosage: UNK

REACTIONS (1)
  - Lymphopenia [Unknown]
